FAERS Safety Report 5043214-2 (Version None)
Quarter: 2006Q2

REPORT INFORMATION
  Report Type: 
  Country: None (occurrence: None)
  Receive Date: 20060629
  Receipt Date: 20060613
  Transmission Date: 20061013
  Serious: Yes (Other)
  Sender: FDA-Public Use
  Company Number: GB-2006-013748

PATIENT
  Age: 47 Year
  Sex: Female
  Weight: 55 kg

DRUGS (3)
  1. BETASERON [Suspect]
     Dosage: 250 UG, SUBCUTANEOUS
     Route: 058
     Dates: start: 19981005
  2. BACLOFEN [Concomitant]
  3. AMITRIPTYLINE HCL [Concomitant]

REACTIONS (1)
  - MALIGNANT OVARIAN CYST [None]
